FAERS Safety Report 9272701 (Version 1)
Quarter: 2013Q2

REPORT INFORMATION
  Report Type: Spontaneous
  Country: US (occurrence: US)
  Receive Date: 20130506
  Receipt Date: 20130506
  Transmission Date: 20140414
  Serious: No
  Sender: FDA-Public Use
  Company Number: US-ASTRAZENECA-2012SE27226

PATIENT
  Sex: Female

DRUGS (5)
  1. PRILOSEC OTC [Suspect]
     Route: 048
     Dates: start: 20120413, end: 20120413
  2. HORMONE REPLACEMENT [Concomitant]
     Dosage: UNKNOWN
  3. INHALERS [Concomitant]
     Dosage: UNKNOWN
  4. IBUPROFEN [Concomitant]
     Dosage: UNKNOWN
  5. BABY ASPIRIN [Concomitant]

REACTIONS (3)
  - Throat tightness [Recovered/Resolved]
  - Pharyngeal oedema [Recovered/Resolved]
  - Dry throat [Recovered/Resolved]
